FAERS Safety Report 24568116 (Version 6)
Quarter: 2025Q3

REPORT INFORMATION
  Report Type: Report from Study
  Country: CA (occurrence: CA)
  Receive Date: 20241031
  Receipt Date: 20250918
  Transmission Date: 20251021
  Serious: Yes (Other)
  Sender: CELLTRION
  Company Number: CA-CELLTRION INC.-2023CA011057

PATIENT

DRUGS (17)
  1. ADALIMUMAB-AATY [Suspect]
     Active Substance: ADALIMUMAB-AATY
     Indication: Psoriasis
     Dosage: 40 MG, Q2WEEKS (WEEKS-2 WEEKS); PATIENT HAD 4 DOSES OF YUFLYMA ALREADY. / 40.0 MILLIGRAM 1 EVERY 2 W
     Route: 058
     Dates: start: 20230412
  2. ADALIMUMAB-AATY [Suspect]
     Active Substance: ADALIMUMAB-AATY
     Dosage: 40 MG, Q2WEEKS (WEEKS-2 WEEKS); PATIENT HAD 4 DOSES OF YUFLYMA ALREADY. / 40.0 MILLIGRAM 1 EVERY 2 W
     Route: 058
     Dates: start: 20230426
  3. ADALIMUMAB-AATY [Suspect]
     Active Substance: ADALIMUMAB-AATY
     Dosage: 40 MG, Q2WEEKS (WEEKS-2 WEEKS); PATIENT HAD 4 DOSES OF YUFLYMA ALREADY. / 40.0 MILLIGRAM 1 EVERY 2 W
     Route: 058
     Dates: start: 20230510
  4. ADALIMUMAB-AATY [Suspect]
     Active Substance: ADALIMUMAB-AATY
     Dosage: 40 MG, Q2WEEKS (WEEKS-2 WEEKS); PATIENT HAD 4 DOSES OF YUFLYMA ALREADY. / 40.0 MILLIGRAM 1 EVERY 2 W
     Route: 058
     Dates: start: 20230525
  5. ADALIMUMAB-AATY [Suspect]
     Active Substance: ADALIMUMAB-AATY
     Dosage: 40 MG, Q2WEEKS (WEEKS-2 WEEKS); PATIENT HAD 4 DOSES OF YUFLYMA ALREADY. / 40.0 MILLIGRAM 1 EVERY 2 W
     Route: 058
     Dates: start: 20230614
  6. ADALIMUMAB-AATY [Suspect]
     Active Substance: ADALIMUMAB-AATY
     Dosage: 40 MG, Q2WEEKS (WEEKS-2 WEEKS); PATIENT HAD 4 DOSES OF YUFLYMA ALREADY. / 40.0 MILLIGRAM 1 EVERY 2 W
     Route: 058
     Dates: start: 20230628
  7. ADALIMUMAB-AATY [Suspect]
     Active Substance: ADALIMUMAB-AATY
     Dosage: 40 MG, Q2WEEKS (WEEKS-2 WEEKS); PATIENT HAD 4 DOSES OF YUFLYMA ALREADY. / 40.0 MILLIGRAM 1 EVERY 2 W
     Route: 058
     Dates: start: 20230713
  8. ADALIMUMAB-AATY [Suspect]
     Active Substance: ADALIMUMAB-AATY
     Dosage: 40 MG WEEKLY
     Route: 058
  9. ADALIMUMAB-AATY [Suspect]
     Active Substance: ADALIMUMAB-AATY
     Dosage: 40 MG SC Q 2 WEEKS / 40.0 MILLIGRAM 1 EVERY 2 WEEKS
     Route: 058
     Dates: start: 20241023
  10. ADALIMUMAB-AATY [Suspect]
     Active Substance: ADALIMUMAB-AATY
     Dosage: 40 MG, EVERY 2 WEEKS / 40.0 MILLIGRAM 1 EVERY 2 WEEKS
     Route: 058
     Dates: start: 20240412
  11. ADALIMUMAB-AATY [Suspect]
     Active Substance: ADALIMUMAB-AATY
     Dosage: 40 MG, EVERY 2 WEEKS / 40.0 MILLIGRAM 1 EVERY 2 WEEKS
     Route: 058
     Dates: start: 20230412
  12. LORAZEPAM [Concomitant]
     Active Substance: LORAZEPAM
     Indication: Product used for unknown indication
     Route: 065
  13. SYNTHROID [Concomitant]
     Active Substance: LEVOTHYROXINE SODIUM
     Indication: Product used for unknown indication
     Route: 065
  14. METOPROLOL [Concomitant]
     Active Substance: METOPROLOL
     Indication: Product used for unknown indication
     Route: 065
  15. CANDESARTAN [Concomitant]
     Active Substance: CANDESARTAN
     Indication: Product used for unknown indication
     Route: 065
  16. ALLOPURINOL [Concomitant]
     Active Substance: ALLOPURINOL
     Indication: Product used for unknown indication
     Route: 065
  17. AMLODIPINE [Concomitant]
     Active Substance: AMLODIPINE BESYLATE
     Indication: Product used for unknown indication
     Route: 065

REACTIONS (17)
  - Alcohol poisoning [Not Recovered/Not Resolved]
  - Osteoarthritis [Not Recovered/Not Resolved]
  - Syncope [Not Recovered/Not Resolved]
  - Malaise [Not Recovered/Not Resolved]
  - Injection site bruising [Not Recovered/Not Resolved]
  - Arthritis [Not Recovered/Not Resolved]
  - Neuropathy peripheral [Not Recovered/Not Resolved]
  - Eczema [Not Recovered/Not Resolved]
  - Infection [Not Recovered/Not Resolved]
  - Urinary tract infection [Not Recovered/Not Resolved]
  - Hypersensitivity [Not Recovered/Not Resolved]
  - Device malfunction [Not Recovered/Not Resolved]
  - Product dose omission in error [Not Recovered/Not Resolved]
  - Product storage error [Not Recovered/Not Resolved]
  - Wrong technique in product usage process [Not Recovered/Not Resolved]
  - Inappropriate schedule of product administration [Not Recovered/Not Resolved]
  - Malaise [Unknown]

NARRATIVE: CASE EVENT DATE: 20230412
